FAERS Safety Report 10503705 (Version 2)
Quarter: 2014Q4

REPORT INFORMATION
  Report Type: Spontaneous
  Country: US (occurrence: None)
  Receive Date: 20141006
  Receipt Date: 20141024
  Transmission Date: 20150528
  Serious: Yes (Other)
  Sender: FDA-Public Use
  Company Number: 2014-US-012431

PATIENT
  Sex: Female

DRUGS (1)
  1. XYREM [Suspect]
     Active Substance: SODIUM OXYBATE
     Indication: SOMNOLENCE
     Route: 048
     Dates: start: 201408

REACTIONS (5)
  - Feeling abnormal [None]
  - Nervousness [None]
  - Off label use [None]
  - Postural orthostatic tachycardia syndrome [None]
  - Weight decreased [None]
